FAERS Safety Report 15895673 (Version 2)
Quarter: 2019Q1

REPORT INFORMATION
  Report Type: Spontaneous
  Country: US (occurrence: US)
  Receive Date: 20190131
  Receipt Date: 20190218
  Transmission Date: 20190417
  Serious: Yes (Other)
  Sender: FDA-Public Use
  Company Number: US-BAYER-2019-022918

PATIENT
  Age: 20 Year
  Sex: Female

DRUGS (2)
  1. MIRENA [Suspect]
     Active Substance: LEVONORGESTREL
     Indication: POLYCYSTIC OVARIES
     Dosage: 20 MCG/24HR, CONT
     Route: 015
     Dates: start: 20160505, end: 20190131
  2. MIRENA [Suspect]
     Active Substance: LEVONORGESTREL
     Indication: POLYCYSTIC OVARIES

REACTIONS (4)
  - Genital haemorrhage [Unknown]
  - Product use in unapproved indication [None]
  - Unintentional medical device removal [None]
  - Off label use [None]

NARRATIVE: CASE EVENT DATE: 20160505
